FAERS Safety Report 5751263-1 (Version None)
Quarter: 2008Q2

REPORT INFORMATION
  Report Type: 
  Country: None (occurrence: None)
  Receive Date: 20080527
  Receipt Date: 20080122
  Transmission Date: 20081010
  Serious: Yes (Other)
  Sender: FDA-Public Use
  Company Number: WAES 0801USA04438

PATIENT
  Sex: Female

DRUGS (11)
  1. JANUVIA [Suspect]
     Indication: TYPE 2 DIABETES MELLITUS
     Dosage: 100 MG/DAILY/PO
     Route: 048
     Dates: start: 20070430, end: 20080121
  2. ACTOS [Concomitant]
  3. CELEBREX [Concomitant]
  4. CRESTOR [Concomitant]
  5. DIOVAN [Concomitant]
  6. LASIX [Concomitant]
  7. NASONEX [Concomitant]
  8. SULAR [Concomitant]
  9. SYNTHROID [Concomitant]
  10. ZYRTEC [Concomitant]
  11. ASPIRIN [Concomitant]

REACTIONS (2)
  - ANGIOEDEMA [None]
  - URTICARIA [None]
